FAERS Safety Report 21995389 (Version 1)
Quarter: 2023Q1

REPORT INFORMATION
  Report Type: Spontaneous
  Country: US (occurrence: None)
  Receive Date: 20230214
  Receipt Date: 20230214
  Transmission Date: 20230418
  Serious: No
  Sender: FDA-Public Use
  Company Number: None

PATIENT
  Age: 60 Year
  Sex: Female

DRUGS (1)
  1. TRAMADOL HCL [Suspect]
     Active Substance: TRAMADOL HYDROCHLORIDE
     Indication: Arthralgia

REACTIONS (4)
  - Headache [None]
  - Vomiting [None]
  - Nausea [None]
  - Malaise [None]

NARRATIVE: CASE EVENT DATE: 20230213
